FAERS Safety Report 7820147-7 (Version None)
Quarter: 2011Q4

REPORT INFORMATION
  Report Type: 
  Country: None (occurrence: None)
  Receive Date: 20111018
  Receipt Date: 20111013
  Transmission Date: 20120403
  Serious: Yes (Other)
  Sender: FDA-Public Use
  Company Number: US-PFIZER INC-2011241138

PATIENT
  Sex: Male
  Weight: 104.31 kg

DRUGS (3)
  1. WARFARIN SODIUM [Suspect]
     Dosage: UNK
  2. CORDARONE [Suspect]
     Indication: ATRIAL FIBRILLATION
     Dosage: UNK, 2X/DAY
     Route: 048
     Dates: start: 20101001, end: 20110401
  3. CORDARONE [Suspect]
     Indication: HEART RATE IRREGULAR

REACTIONS (5)
  - FATIGUE [None]
  - TOTAL LUNG CAPACITY DECREASED [None]
  - BALANCE DISORDER [None]
  - FALL [None]
  - HEAD INJURY [None]
